FAERS Safety Report 14971278 (Version 6)
Quarter: 2019Q1

REPORT INFORMATION
  Report Type: Spontaneous
  Country: JP (occurrence: JP)
  Receive Date: 20180604
  Receipt Date: 20190319
  Transmission Date: 20190417
  Serious: Yes (Death, Other)
  Sender: FDA-Public Use
  Company Number: JP-ELI_LILLY_AND_COMPANY-JP201708003892

PATIENT
  Age: 56 Year
  Sex: Male
  Weight: 55 kg

DRUGS (4)
  1. ERBITUX [Suspect]
     Active Substance: CETUXIMAB
     Indication: TONGUE NEOPLASM MALIGNANT STAGE UNSPECIFIED
     Dosage: 400 MG/M2, UNKNOWN
     Route: 041
     Dates: start: 20170516, end: 20170516
  2. ERBITUX [Suspect]
     Active Substance: CETUXIMAB
     Dosage: 250 MG/M2, WEEKLY (1/W)
     Route: 041
     Dates: start: 20170523, end: 20170627
  3. SOLDEM 3A [Concomitant]
     Active Substance: CARBOHYDRATES\POTASSIUM CHLORIDE\SODIUM CHLORIDE\SODIUM LACTATE
     Indication: PRODUCT USED FOR UNKNOWN INDICATION
  4. AIMIX [Concomitant]
     Active Substance: AMLODIPINE BESYLATE\IRBESARTAN
     Indication: PRODUCT USED FOR UNKNOWN INDICATION
     Dosage: 1 DF, DAILY

REACTIONS (24)
  - Post procedural haemorrhage [Unknown]
  - White blood cell count decreased [Recovered/Resolved]
  - Respiratory failure [Fatal]
  - Device leakage [Unknown]
  - Radiation pneumonitis [Recovering/Resolving]
  - Dyspnoea [Unknown]
  - Peripheral swelling [Unknown]
  - Metastases to lymph nodes [Unknown]
  - Gastrostomy [Unknown]
  - Mouth haemorrhage [Unknown]
  - Epistaxis [Unknown]
  - Device occlusion [Unknown]
  - Pneumonia aspiration [Unknown]
  - Device related infection [Unknown]
  - Metastasis [Unknown]
  - Tremor [Unknown]
  - Pyrexia [Unknown]
  - Blood albumin decreased [Unknown]
  - Malignant pleural effusion [Fatal]
  - Metastases to bone [Unknown]
  - Cardiac failure [Recovering/Resolving]
  - Interstitial lung disease [Recovering/Resolving]
  - Haemorrhagic tumour necrosis [Unknown]
  - Lip haemorrhage [Unknown]

NARRATIVE: CASE EVENT DATE: 2017
